FAERS Safety Report 9915878 (Version 2)
Quarter: 2014Q2

REPORT INFORMATION
  Report Type: Spontaneous
  Country: CA (occurrence: CA)
  Receive Date: 20140221
  Receipt Date: 20140602
  Transmission Date: 20141212
  Serious: Yes (Other)
  Sender: FDA-Public Use
  Company Number: CA-AMGEN-CANSP2014012009

PATIENT
  Age: 60 Year
  Sex: Female
  Weight: 56.69 kg

DRUGS (3)
  1. PROLIA [Suspect]
     Indication: OSTEOPOROSIS
     Dosage: UNK UNK, Q6MO
     Route: 065
  2. NEXIUM                             /01479302/ [Concomitant]
     Dosage: 10 MG, UNK
     Route: 048
  3. SAFALEX [Concomitant]
     Dosage: 100 UNK, UNK
     Route: 048

REACTIONS (2)
  - Impaired healing [Unknown]
  - Dental care [Unknown]
